FAERS Safety Report 10028278 (Version 1)
Quarter: 2014Q1

REPORT INFORMATION
  Report Type: Spontaneous
  Country: US (occurrence: None)
  Receive Date: 20140307
  Receipt Date: 20140307
  Transmission Date: 20141002
  Serious: Yes (Other)
  Sender: FDA-Public Use
  Company Number: 2014-US-002605

PATIENT
  Age: 47 Year
  Sex: Male

DRUGS (1)
  1. XYREM [Suspect]
     Indication: NARCOLEPSY
     Route: 048
     Dates: start: 201401, end: 2014

REACTIONS (5)
  - Sleep apnoea syndrome [None]
  - Bipolar disorder [None]
  - Depression [None]
  - Night sweats [None]
  - Abnormal dreams [None]
